FAERS Safety Report 5725993-1 (Version None)
Quarter: 2008Q2

REPORT INFORMATION
  Report Type: 
  Country: None (occurrence: None)
  Receive Date: 20080501
  Receipt Date: 20080501
  Transmission Date: 20081010
  Serious: No
  Sender: FDA-Public Use
  Company Number: None

PATIENT
  Age: 51 Year
  Sex: Male

DRUGS (2)
  1. KALETRA [Suspect]
     Dates: start: 20050426, end: 20051012
  2. COMBIVIR [Suspect]
     Dates: start: 20050426, end: 20051012

REACTIONS (8)
  - HEPATITIS ACUTE [None]
  - HEPATOTOXICITY [None]
  - LIVER INJURY [None]
  - MULTI-ORGAN FAILURE [None]
  - PNEUMOCYSTIS JIROVECI PNEUMONIA [None]
  - PNEUMONIA [None]
  - SEPSIS [None]
  - TREATMENT NONCOMPLIANCE [None]
